FAERS Safety Report 19578662 (Version 2)
Quarter: 2021Q3

REPORT INFORMATION
  Report Type: Report from Study
  Country: US (occurrence: US)
  Receive Date: 20210719
  Receipt Date: 20210730
  Transmission Date: 20211014
  Serious: Yes (Hospitalization)
  Sender: FDA-Public Use
  Company Number: US-BAYER-2021-168527

PATIENT
  Age: 88 Year
  Sex: Male

DRUGS (2)
  1. XOFIGO [Suspect]
     Active Substance: RADIUM RA-223 DICHLORIDE
     Indication: HORMONE-REFRACTORY PROSTATE CANCER
     Dosage: 132.60 ?CI, Q4WK
     Route: 042
     Dates: start: 20210604, end: 20210604
  2. METOPROLOL. [Concomitant]
     Active Substance: METOPROLOL
     Dosage: UNK

REACTIONS (6)
  - Cast removal [Recovering/Resolving]
  - Fall [Unknown]
  - Hypotension [None]
  - Syncope [Recovering/Resolving]
  - Urinary tract infection [None]
  - Bradycardia [None]

NARRATIVE: CASE EVENT DATE: 20210701
